FAERS Safety Report 7321572-3 (Version None)
Quarter: 2011Q1

REPORT INFORMATION
  Report Type: 
  Country: None (occurrence: None)
  Receive Date: 20110228
  Receipt Date: 20100526
  Transmission Date: 20110831
  Serious: No
  Sender: FDA-Public Use
  Company Number: A0861471A

PATIENT
  Sex: Female

DRUGS (4)
  1. VALTREX [Suspect]
     Indication: GENITAL HERPES
     Dosage: 1G AS REQUIRED
     Route: 048
     Dates: start: 20090101
  2. MULTI-VITAMIN [Concomitant]
  3. LYSINE [Concomitant]
  4. IBUPROFEN [Concomitant]

REACTIONS (1)
  - NAUSEA [None]
